FAERS Safety Report 8232199-3 (Version None)
Quarter: 2012Q1

REPORT INFORMATION
  Report Type: 
  Country: None (occurrence: None)
  Receive Date: 20120323
  Receipt Date: 20120308
  Transmission Date: 20120608
  Serious: Yes (Death, Life-Threatening, Hospitalization, Disabling)
  Sender: FDA-Public Use
  Company Number: US-ROCHE-1042478

PATIENT
  Sex: Female
  Weight: 90.5 kg

DRUGS (22)
  1. LASIX [Concomitant]
     Indication: FLUID OVERLOAD
     Route: 048
     Dates: start: 20110901
  2. PROMETHAZINE [Concomitant]
     Indication: NAUSEA
     Route: 048
     Dates: start: 20110613, end: 20110817
  3. RABEPRAZOLE SODIUM [Concomitant]
     Indication: GASTROOESOPHAGEAL REFLUX DISEASE
     Route: 048
     Dates: start: 20110720
  4. ALPRAZOLAM [Concomitant]
     Indication: ANXIETY
     Route: 048
     Dates: start: 20110413
  5. EPOETIN ALFA [Concomitant]
     Indication: ANAEMIA
     Dosage: 4000 UNITS
     Route: 058
     Dates: start: 20110421, end: 20110705
  6. DIPHENHYDRAMINE HCL [Concomitant]
     Route: 048
     Dates: start: 20110614, end: 20110614
  7. COPEGUS [Suspect]
     Route: 048
     Dates: start: 20110427, end: 20110510
  8. COPEGUS [Suspect]
     Route: 048
     Dates: start: 20110510, end: 20110705
  9. ESOMEPRAZOLE SODIUM [Concomitant]
     Dates: start: 20110720, end: 20110722
  10. ZOLPIDEM [Concomitant]
     Indication: INSOMNIA
     Route: 048
     Dates: start: 20110316
  11. RED CELLS PACK [Concomitant]
     Indication: ANAEMIA
     Dosage: 3 UNITS
     Route: 042
     Dates: start: 20110614, end: 20110614
  12. ACETAMINOPHEN [Concomitant]
     Route: 048
     Dates: start: 20110614, end: 20110614
  13. PROTONIX [Concomitant]
     Route: 048
     Dates: start: 20110826, end: 20110906
  14. PEGINTERFERON ALFA-2A [Suspect]
     Indication: HEPATITIS C
     Route: 058
     Dates: start: 20110316, end: 20110420
  15. LORTAB [Concomitant]
     Indication: ARTHRITIS
     Route: 048
     Dates: start: 20110316
  16. SPIRONOLACTONE [Concomitant]
     Indication: OEDEMA
     Route: 048
     Dates: start: 20110802
  17. LASIX [Concomitant]
     Dates: start: 20110614, end: 20110614
  18. RO 5466731 (HCV NS5B INHIBITOR) [Suspect]
     Indication: HEPATITIS C
     Dosage: DATE OF DICONTINUATION: 05/JUL/2011
     Dates: start: 20110316, end: 20110705
  19. PEGINTERFERON ALFA-2A [Suspect]
     Route: 058
     Dates: start: 20110420, end: 20110629
  20. COPEGUS [Suspect]
     Indication: HEPATITIS C
     Route: 048
     Dates: start: 20110316, end: 20110427
  21. LORTAB [Concomitant]
     Route: 048
     Dates: start: 20110316
  22. LITHIUM CARBONATE [Concomitant]
     Indication: DEPRESSION
     Route: 048
     Dates: start: 20110413

REACTIONS (4)
  - B-CELL LYMPHOMA STAGE IV [None]
  - PULMONARY VASCULITIS [None]
  - PANCYTOPENIA [None]
  - PNEUMONIA [None]
